FAERS Safety Report 24299188 (Version 4)
Quarter: 2025Q2

REPORT INFORMATION
  Report Type: Spontaneous
  Country: US (occurrence: US)
  Receive Date: 20240909
  Receipt Date: 20250421
  Transmission Date: 20250717
  Serious: Yes (Other)
  Sender: PFIZER
  Company Number: US-PFIZER INC-202400251848

PATIENT
  Age: 41 Year
  Sex: Male

DRUGS (6)
  1. VELSIPITY [Suspect]
     Active Substance: ETRASIMOD ARGININE
  2. ALLEGRA [Concomitant]
     Active Substance: FEXOFENADINE HYDROCHLORIDE
  3. DICLOFENAC [Concomitant]
     Active Substance: DICLOFENAC
  4. METAMUCIL THERAPY FOR REGULARITY [Concomitant]
     Active Substance: PSYLLIUM HUSK
  5. HYDROCHLOROTHIAZIDE [Concomitant]
     Active Substance: HYDROCHLOROTHIAZIDE
  6. MESALAMINE [Concomitant]
     Active Substance: MESALAMINE

REACTIONS (6)
  - Colitis ulcerative [Unknown]
  - Blood pressure abnormal [Unknown]
  - Hypersensitivity [Unknown]
  - Nasal congestion [Recovering/Resolving]
  - Blood iron decreased [Unknown]
  - Arthralgia [Unknown]
